FAERS Safety Report 19796871 (Version 2)
Quarter: 2021Q3

REPORT INFORMATION
  Report Type: Spontaneous
  Country: NL (occurrence: NL)
  Receive Date: 20210907
  Receipt Date: 20210909
  Transmission Date: 20211014
  Serious: Yes (Other)
  Sender: FDA-Public Use
  Company Number: NL-MYLANLABS-2021M1057936

PATIENT
  Age: 51 Year
  Sex: Female
  Weight: 101 kg

DRUGS (13)
  1. SULFASALAZINE. [Suspect]
     Active Substance: SULFASALAZINE
     Dosage: UNK, 2X PER DAY 1 TABLET
     Route: 065
     Dates: end: 20210225
  2. NAPROXEN. [Suspect]
     Active Substance: NAPROXEN
     Indication: INFLAMMATORY PAIN
     Dosage: UNK, 500 UNK
  3. VOLTAREN                           /00372303/ [Concomitant]
     Active Substance: DICLOFENAC DIETHYLAMINE
     Indication: RHEUMATIC DISORDER
     Dosage: UNK
     Route: 065
  4. VAXIGRIPTETRA [Suspect]
     Active Substance: INFLUENZA VIRUS VACCINE QUADRIVALENT TYPE A+B
     Indication: PRODUCT USED FOR UNKNOWN INDICATION
     Dosage: UNK
     Route: 065
     Dates: start: 20201110, end: 20201110
  5. PARACETAMOL [Concomitant]
     Active Substance: ACETAMINOPHEN
     Indication: PAIN
     Dosage: UNK
     Route: 065
  6. METHOTREXATE. [Suspect]
     Active Substance: METHOTREXATE
     Dosage: 1 DOSAGE FORM, QW (1 DF, QW (6 TABLETS)
     Route: 065
     Dates: start: 201909
  7. THYRAX                             /00068001/ [Concomitant]
     Active Substance: LEVOTHYROXINE
     Indication: AUTOIMMUNE THYROID DISORDER
     Dosage: 0.13 MILLIGRAM, QD, 0.125 MG, QD
     Route: 065
  8. FLU VACCINE VII [Suspect]
     Active Substance: INFLUENZA VIRUS VACCINE
     Indication: PRODUCT USED FOR UNKNOWN INDICATION
     Dosage: UNK
     Route: 065
     Dates: start: 20201110, end: 20201110
  9. SULFASALAZINE. [Suspect]
     Active Substance: SULFASALAZINE
     Indication: RHEUMATOID ARTHRITIS
     Dosage: 3 DOSAGE FORM
     Route: 065
  10. METHOTREXATE. [Suspect]
     Active Substance: METHOTREXATE
     Indication: RHEUMATOID ARTHRITIS
     Dosage: UNK, QW
     Route: 065
  11. THYRAX                             /00068001/ [Concomitant]
     Active Substance: LEVOTHYROXINE
     Indication: THYROID GLAND INJURY
     Dosage: 0.13 MILLIGRAM, QD (0.125 MG, QD)
     Route: 065
  12. PARACETAMOL [Concomitant]
     Active Substance: ACETAMINOPHEN
     Dosage: 500 UNK (2X500 MULTIPLE TIMES IN DAY)
     Route: 065
  13. SULFASALAZINE. [Suspect]
     Active Substance: SULFASALAZINE
     Dosage: UNK, (2X PER DAY 2 AND 1 TABLET (BUILD?UP)
     Route: 065
     Dates: start: 20191117

REACTIONS (14)
  - Burning feet syndrome [Recovered/Resolved]
  - Myalgia [Unknown]
  - Muscle strength abnormal [Unknown]
  - Therapeutic response unexpected [Recovered/Resolved]
  - Oropharyngeal pain [Unknown]
  - Increased viscosity of upper respiratory secretion [Unknown]
  - Blood test abnormal [Unknown]
  - Neuropathy peripheral [Recovering/Resolving]
  - Hypotension [Unknown]
  - Drug ineffective [Unknown]
  - Inflammation [Recovered/Resolved]
  - Lacrimation increased [Unknown]
  - Urticaria [Recovered/Resolved]
  - Epistaxis [Unknown]

NARRATIVE: CASE EVENT DATE: 2019
